FAERS Safety Report 23622424 (Version 1)
Quarter: 2024Q1

REPORT INFORMATION
  Report Type: Spontaneous
  Country: ES (occurrence: ES)
  Receive Date: 20240312
  Receipt Date: 20240312
  Transmission Date: 20240410
  Serious: Yes (Disabling)
  Sender: FDA-Public Use
  Company Number: None

PATIENT
  Sex: Male
  Weight: 73 kg

DRUGS (6)
  1. CIPROFLOXACIN [Suspect]
     Active Substance: CIPROFLOXACIN
     Indication: Product used for unknown indication
     Dosage: UNK
     Route: 042
     Dates: start: 20240110, end: 20240111
  2. AMOXICILLIN [Concomitant]
     Active Substance: AMOXICILLIN
     Indication: Gastroenteritis
     Dosage: UNK (INTRAVENOSA)
     Route: 042
     Dates: start: 20240109, end: 20240111
  3. BUSCAPINA [Concomitant]
     Indication: Gastroenteritis
     Dosage: UNK
     Route: 042
     Dates: start: 20240109, end: 20240111
  4. Nolotil [Concomitant]
     Indication: Gastroenteritis
     Dosage: UNK
     Route: 042
     Dates: start: 20240110, end: 20240111
  5. ONDANSETRON [Concomitant]
     Active Substance: ONDANSETRON
     Indication: Gastroenteritis
     Dosage: UNK
     Route: 042
     Dates: start: 20240109, end: 20240111
  6. PANTOPRAZOLE SODIUM [Concomitant]
     Active Substance: PANTOPRAZOLE SODIUM
     Indication: Gastroenteritis
     Dosage: UNK
     Route: 042
     Dates: start: 20240109, end: 20240111

REACTIONS (10)
  - Eye pain [Not Recovered/Not Resolved]
  - Insomnia [Not Recovered/Not Resolved]
  - Myalgia [Not Recovered/Not Resolved]
  - Oropharyngeal discomfort [Not Recovered/Not Resolved]
  - Erythema [Not Recovered/Not Resolved]
  - Abdominal discomfort [Not Recovered/Not Resolved]
  - Sleep disorder [Not Recovered/Not Resolved]
  - Tendon pain [Not Recovered/Not Resolved]
  - Muscle spasms [Not Recovered/Not Resolved]
  - Chest pain [Not Recovered/Not Resolved]

NARRATIVE: CASE EVENT DATE: 20240113
